FAERS Safety Report 6524683-5 (Version None)
Quarter: 2009Q4

REPORT INFORMATION
  Report Type: 
  Country: None (occurrence: None)
  Receive Date: 20091222
  Receipt Date: 20091218
  Transmission Date: 20100525
  Serious: Yes (Hospitalization)
  Sender: FDA-Public Use
  Company Number: LMI-2009-00295

PATIENT
  Age: 43 Year
  Sex: Male

DRUGS (1)
  1. VASOVIST (GADOFOSVESET TRISODIUM) [Suspect]
     Indication: ANGIOGRAM
     Dosage: 10 ML
     Dates: start: 20091017, end: 20091017

REACTIONS (8)
  - COUGH [None]
  - DYSPNOEA [None]
  - EYE SWELLING [None]
  - FEELING ABNORMAL [None]
  - HEADACHE [None]
  - HEART RATE INCREASED [None]
  - OCULAR HYPERAEMIA [None]
  - SNEEZING [None]
